FAERS Safety Report 19670192 (Version 2)
Quarter: 2021Q3

REPORT INFORMATION
  Report Type: Spontaneous
  Country: DE (occurrence: DE)
  Receive Date: 20210806
  Receipt Date: 20210809
  Transmission Date: 20211014
  Serious: Yes (Other)
  Sender: FDA-Public Use
  Company Number: DE-PFIZER INC-202100950026

PATIENT
  Age: 33 Year
  Sex: Female
  Weight: 56 kg

DRUGS (1)
  1. CYTOTEC [Suspect]
     Active Substance: MISOPROSTOL
     Indication: INDUCED LABOUR
     Dosage: 1 DF, SINGLE
     Dates: start: 20170820, end: 20170820

REACTIONS (7)
  - Uterine hypertonus [Recovered/Resolved]
  - Impulse-control disorder [Unknown]
  - Post-traumatic stress disorder [Unknown]
  - Off label use [Recovered/Resolved]
  - Traumatic delivery [Recovered/Resolved]
  - Vulvovaginal injury [Unknown]
  - Pain [Unknown]

NARRATIVE: CASE EVENT DATE: 2017
